FAERS Safety Report 10902537 (Version 2)
Quarter: 2015Q1

REPORT INFORMATION
  Report Type: Spontaneous
  Country: ES (occurrence: ES)
  Receive Date: 20150310
  Receipt Date: 20150310
  Transmission Date: 20150721
  Serious: Yes (Death, Hospitalization, Other)
  Sender: FDA-Public Use
  Company Number: ES-WATSON-2015-04152

PATIENT
  Age: 24 Year
  Sex: Male

DRUGS (5)
  1. IBUPROFEN (UNKNOWN) [Interacting]
     Active Substance: IBUPROFEN
     Indication: SUICIDE ATTEMPT
     Dosage: 1.2 G, SINGLE
     Route: 048
  2. METFORMINA PENSA PHARMA [Interacting]
     Active Substance: METFORMIN HYDROCHLORIDE
     Indication: SUICIDE ATTEMPT
     Dosage: 85 G, SINGLE
     Route: 048
  3. OMEPRAZOLE (UNKNOWN) [Suspect]
     Active Substance: OMEPRAZOLE
     Indication: SUICIDE ATTEMPT
     Dosage: 0.56 G, SINGLE
     Route: 048
  4. AMOXICILLIN-CLAVULANIC ACID (UNKNOWN) [Suspect]
     Active Substance: AMOXICILLIN\CLAVULANIC ACID
     Indication: SUICIDE ATTEMPT
     Dosage: UNK, 28/1.75G
     Route: 048
  5. PARACETAMOL  (UNKNOWN) [Suspect]
     Active Substance: ACETAMINOPHEN
     Indication: SUICIDE ATTEMPT
     Dosage: 2.6 G, SINGLE
     Route: 048

REACTIONS (18)
  - Drug interaction [Unknown]
  - Aspiration [None]
  - Toxicity to various agents [None]
  - Hypernatraemia [None]
  - Cardiopulmonary failure [None]
  - Bradycardia [None]
  - Fluid overload [None]
  - Lactic acidosis [None]
  - Intentional overdose [None]
  - Electrocardiogram QRS complex prolonged [None]
  - Acute kidney injury [Not Recovered/Not Resolved]
  - Overdose [Unknown]
  - Continuous haemodiafiltration [None]
  - Pleural effusion [None]
  - Vomiting [None]
  - Rhabdomyolysis [Fatal]
  - Myocardial necrosis marker increased [None]
  - Suicide attempt [Fatal]
